FAERS Safety Report 5589372-2 (Version None)
Quarter: 2008Q1

REPORT INFORMATION
  Report Type: 
  Country: None (occurrence: None)
  Receive Date: 20080114
  Receipt Date: 20080107
  Transmission Date: 20080703
  Serious: Yes (Hospitalization)
  Sender: FDA-Public Use
  Company Number: JP-SP-2007-04331

PATIENT
  Age: 64 Year
  Sex: Male

DRUGS (6)
  1. IMMUCYST [Suspect]
     Indication: MALIGNANT NEOPLASM OF RENAL PELVIS
     Route: 043
     Dates: start: 20070611, end: 20071016
  2. IMMUCYST [Suspect]
     Route: 043
     Dates: start: 20070611, end: 20071016
  3. TEGAFUR URACIL [Concomitant]
     Dates: start: 20071016
  4. SOLIFENACIN SUCCINATE [Concomitant]
     Dates: start: 20071029
  5. FLUNITRAZEPAM [Concomitant]
     Dates: start: 20071108
  6. SHOUSAIKOTOU [Concomitant]
     Dates: start: 20071120

REACTIONS (3)
  - DYSURIA [None]
  - HAEMATURIA [None]
  - POLLAKIURIA [None]
